FAERS Safety Report 10305602 (Version 6)
Quarter: 2014Q4

REPORT INFORMATION
  Report Type: Spontaneous
  Country: DE (occurrence: DE)
  Receive Date: 20140715
  Receipt Date: 20141017
  Transmission Date: 20150528
  Serious: Yes (Death, Life-Threatening, Other)
  Sender: FDA-Public Use
  Company Number: DE-BEH-2014043744

PATIENT
  Age: 59 Year
  Sex: Male
  Weight: 110 kg

DRUGS (4)
  1. PREDNISOLONE. [Concomitant]
     Active Substance: PREDNISOLONE
  2. TAVEGIL [Concomitant]
     Active Substance: CLEMASTINE FUMARATE
     Dosage: 1 VIAL
  3. PRIVIGEN [Suspect]
     Active Substance: HUMAN IMMUNOGLOBULIN G
     Indication: SECONDARY IMMUNODEFICIENCY
     Route: 042
     Dates: start: 20140627, end: 20140627
  4. ERYTHROCYTES CONCENTRATE [Concomitant]
     Indication: ANAEMIA
     Dosage: 1 SEPERATE DOSE
     Route: 042
     Dates: start: 20140627, end: 20140627

REACTIONS (16)
  - Chills [Recovered/Resolved with Sequelae]
  - Bronchospasm [Recovered/Resolved with Sequelae]
  - Malaise [Recovered/Resolved with Sequelae]
  - Tachycardia [Recovered/Resolved with Sequelae]
  - Anaphylactic shock [Recovered/Resolved with Sequelae]
  - Resuscitation [Recovered/Resolved with Sequelae]
  - Circulatory collapse [Recovered/Resolved with Sequelae]
  - Oxygen saturation decreased [Recovered/Resolved with Sequelae]
  - Pneumonia [Fatal]
  - Pulmonary oedema [Fatal]
  - Myalgia [Recovered/Resolved with Sequelae]
  - Dyspnoea [Recovered/Resolved with Sequelae]
  - Hyperhidrosis [Recovered/Resolved with Sequelae]
  - Panic attack [Recovered/Resolved with Sequelae]
  - Flank pain [Recovered/Resolved with Sequelae]
  - Hypotension [Recovered/Resolved with Sequelae]

NARRATIVE: CASE EVENT DATE: 20140627
